FAERS Safety Report 8060459-8 (Version None)
Quarter: 2012Q1

REPORT INFORMATION
  Report Type: 
  Country: None (occurrence: None)
  Receive Date: 20120120
  Receipt Date: 20120113
  Transmission Date: 20120608
  Serious: Yes (Other)
  Sender: FDA-Public Use
  Company Number: FR-GLAXOSMITHKLINE-B0775942A

PATIENT
  Age: 84 Year
  Sex: Female
  Weight: 67 kg

DRUGS (3)
  1. ASPIRIN [Suspect]
     Indication: VENOUS STENT INSERTION
     Route: 048
     Dates: start: 20110101
  2. ARIXTRA [Suspect]
     Indication: ARRHYTHMIA
     Dosage: 7.5MG PER DAY
     Route: 058
     Dates: start: 20111219
  3. PLAVIX [Suspect]
     Indication: VENOUS STENT INSERTION
     Route: 048
     Dates: start: 20110101

REACTIONS (4)
  - INJECTION SITE HAEMATOMA [None]
  - HAEMATOMA [None]
  - ANAEMIA [None]
  - OFF LABEL USE [None]
